FAERS Safety Report 7921593-3 (Version None)
Quarter: 2011Q4

REPORT INFORMATION
  Report Type: 
  Country: None (occurrence: None)
  Receive Date: 20111117
  Receipt Date: 20111114
  Transmission Date: 20120403
  Serious: No
  Sender: FDA-Public Use
  Company Number: US-BAYER-2011-110717

PATIENT
  Sex: Female

DRUGS (1)
  1. MAGNEVIST [Suspect]
     Indication: NUCLEAR MAGNETIC RESONANCE IMAGING
     Dosage: 16 ML, UNK

REACTIONS (4)
  - ABDOMINAL DISCOMFORT [None]
  - UPPER EXTREMITY MASS [None]
  - MIGRAINE [None]
  - VISION BLURRED [None]
